FAERS Safety Report 18607590 (Version 2)
Quarter: 2021Q1

REPORT INFORMATION
  Report Type: Spontaneous
  Country: US (occurrence: US)
  Receive Date: 20201212
  Receipt Date: 20210226
  Transmission Date: 20210419
  Serious: No
  Sender: FDA-Public Use
  Company Number: US-LUPIN PHARMACEUTICALS INC.-2020-09288

PATIENT
  Sex: Female

DRUGS (1)
  1. ALBUTEROL SULFATE INHALATION AEROSOL, 90 MCG/ACTUATION [Suspect]
     Active Substance: ALBUTEROL SULFATE
     Indication: DYSPNOEA
     Dosage: UNK UNK, QID
     Route: 048
     Dates: start: 20201108

REACTIONS (3)
  - Dyspnoea [Recovered/Resolved]
  - Device delivery system issue [Unknown]
  - Product preparation error [Unknown]

NARRATIVE: CASE EVENT DATE: 202011
